FAERS Safety Report 9963993 (Version 2)
Quarter: 2014Q1

REPORT INFORMATION
  Report Type: Report from Study
  Country: DE (occurrence: DE)
  Receive Date: 20140305
  Receipt Date: 20140331
  Transmission Date: 20141002
  Serious: Yes (Hospitalization)
  Sender: FDA-Public Use
  Company Number: DE-CELGENEUS-062-21880-14023082

PATIENT
  Age: 71 Year
  Sex: Male
  Weight: 60 kg

DRUGS (4)
  1. REVLIMID [Suspect]
     Indication: PLASMA CELL MYELOMA
     Dosage: 15 MILLIGRAM
     Route: 048
     Dates: start: 20140123
  2. TILIDINE [Concomitant]
     Indication: BONE PAIN
     Route: 065
     Dates: start: 201109
  3. TILIDINE [Concomitant]
     Route: 048
     Dates: start: 201001
  4. ORTHOTON [Concomitant]
     Indication: MUSCLE SPASTICITY
     Route: 048
     Dates: start: 201310

REACTIONS (2)
  - Circulatory collapse [Recovered/Resolved]
  - Syncope [Recovered/Resolved]
